FAERS Safety Report 25168295 (Version 1)
Quarter: 2025Q2

REPORT INFORMATION
  Report Type: Spontaneous
  Country: ES (occurrence: ES)
  Receive Date: 20250407
  Receipt Date: 20250407
  Transmission Date: 20250717
  Serious: Yes (Other)
  Sender: BAYER
  Company Number: ES-BAYER-2025A038333

PATIENT
  Sex: Male

DRUGS (2)
  1. NUBEQA [Suspect]
     Active Substance: DAROLUTAMIDE
     Indication: Hormone-dependent prostate cancer
     Dosage: 600 MG, BID
     Dates: start: 20241031, end: 20250206
  2. NUBEQA [Suspect]
     Active Substance: DAROLUTAMIDE
     Indication: Hormone-dependent prostate cancer
     Dosage: 600 MG, BID
     Dates: start: 20250313

REACTIONS (5)
  - Respiratory tract infection [None]
  - Pain of skin [None]
  - Skin ulcer [Recovered/Resolved]
  - Erythema [None]
  - Dry skin [None]

NARRATIVE: CASE EVENT DATE: 20250130
